FAERS Safety Report 18268939 (Version 2)
Quarter: 2020Q3

REPORT INFORMATION
  Report Type: Spontaneous
  Country: JP (occurrence: JP)
  Receive Date: 20200915
  Receipt Date: 20200929
  Transmission Date: 20201103
  Serious: Yes (Death)
  Sender: FDA-Public Use
  Company Number: JP-SEATTLE GENETICS-2020SGN04115

PATIENT
  Age: 8 Decade
  Sex: Female

DRUGS (4)
  1. ADCETRIS [Suspect]
     Active Substance: BRENTUXIMAB VEDOTIN
     Indication: ADULT T-CELL LYMPHOMA/LEUKAEMIA RECURRENT
     Dosage: 1.8 MILLIGRAM/KILOGRAM, Q3WEEKS
     Route: 042
     Dates: start: 20200730, end: 20200819
  2. CYCLOPHOSPHAMIDE MONOHYDRATE [Suspect]
     Active Substance: CYCLOPHOSPHAMIDE
     Indication: PRODUCT USED FOR UNKNOWN INDICATION
     Dosage: UNK
     Route: 065
  3. PREDONINE [Suspect]
     Active Substance: PREDNISOLONE
     Indication: PRODUCT USED FOR UNKNOWN INDICATION
     Dosage: UNK
     Route: 065
  4. DOXORUBICIN HYDROCHLORIDE. [Suspect]
     Active Substance: DOXORUBICIN HYDROCHLORIDE
     Indication: PRODUCT USED FOR UNKNOWN INDICATION
     Dosage: UNK
     Route: 065

REACTIONS (2)
  - Adult T-cell lymphoma/leukaemia recurrent [Fatal]
  - Disease progression [Fatal]

NARRATIVE: CASE EVENT DATE: 202009
